FAERS Safety Report 4504627-8 (Version None)
Quarter: 2004Q4

REPORT INFORMATION
  Report Type: 
  Country: None (occurrence: None)
  Receive Date: 20041118
  Receipt Date: 20041101
  Transmission Date: 20050328
  Serious: Yes (Death, Disabling, Other)
  Sender: FDA-Public Use
  Company Number: PHEH2004US12362

PATIENT
  Age: 52 Year
  Sex: Male
  Weight: 90 kg

DRUGS (8)
  1. ZOMETA [Suspect]
     Indication: MULTIPLE MYELOMA
     Dosage: 4 MG, QMO
     Route: 042
     Dates: start: 20020103, end: 20040707
  2. LASIX [Concomitant]
  3. ZANTAC [Concomitant]
  4. CELEBREX [Concomitant]
  5. VIOXX [Concomitant]
  6. POTASSIUM CHLORIDE [Concomitant]
  7. DURAGESIC [Concomitant]
  8. VICODIN [Concomitant]

REACTIONS (5)
  - BONE DEBRIDEMENT [None]
  - DEATH [None]
  - MASTICATION DISORDER [None]
  - OSTEONECROSIS [None]
  - PAIN [None]
